FAERS Safety Report 4323651-1 (Version None)
Quarter: 2004Q1

REPORT INFORMATION
  Report Type: 
  Country: None (occurrence: None)
  Receive Date: 20040323
  Receipt Date: 20040301
  Transmission Date: 20041129
  Serious: Yes (Other)
  Sender: FDA-Public Use
  Company Number: AU-JNJFOC-20040303533

PATIENT
  Sex: Male

DRUGS (5)
  1. TOPAMAX [Suspect]
  2. CLOBAZAM (CLOBAZAM) [Concomitant]
  3. LAMOTRIGINE [Concomitant]
  4. OMEPRAZOLE [Concomitant]
  5. IRON (IRON) [Concomitant]

REACTIONS (2)
  - CONDITION AGGRAVATED [None]
  - GASTROINTESTINAL DISORDER [None]
